FAERS Safety Report 5321225-7 (Version None)
Quarter: 2007Q2

REPORT INFORMATION
  Report Type: 
  Country: None (occurrence: None)
  Receive Date: 20070510
  Receipt Date: 20070508
  Transmission Date: 20071010
  Serious: Yes (Life-Threatening)
  Sender: FDA-Public Use
  Company Number: US-BRISTOL-MYERS SQUIBB COMPANY-13686720

PATIENT
  Age: 51 Year
  Sex: Female
  Weight: 210 kg

DRUGS (58)
  1. DEFINITY [Suspect]
     Indication: ECHOCARDIOGRAM
     Dosage: DEFINITY 2CC
     Route: 042
     Dates: start: 20070127
  2. GENTAMICIN [Concomitant]
  3. GUAIFENESIN + CODEINE [Concomitant]
  4. GLUCAGON [Concomitant]
  5. GLUCOSE [Concomitant]
  6. GLYCOPYRROLATE [Concomitant]
  7. ACETAMINOPHEN AND HYDROCODONE BITARTRATE [Concomitant]
  8. HYDROCODONE TARTRATE+IBUPROFEN [Concomitant]
  9. HYDROCHLOROTHIAZIDE DIURETIC [Concomitant]
  10. HEPARIN [Concomitant]
  11. HYALURONIDASE [Concomitant]
  12. HYDROMORPHONE HCL [Concomitant]
  13. HYDROXYZINE HCL [Concomitant]
  14. INSULIN ASPART [Concomitant]
  15. IPRATROPIUM + ALBUTEROL [Concomitant]
  16. POLYSACCHARIDE + IRON [Concomitant]
  17. LANSOPRAZOLE [Concomitant]
  18. LEVOFLOXACIN [Concomitant]
     Dosage: 500 MG AND 750 MG
  19. LIDOCAINE HCL [Concomitant]
  20. LINEZOLID [Concomitant]
  21. LISINOPRIL [Concomitant]
  22. LOPERAMIDE HCL [Concomitant]
  23. LOSARTAN POSTASSIUM [Concomitant]
  24. POLYETHYLENE GLYCOL [Concomitant]
  25. MEPERIDINE HCL [Concomitant]
  26. METOLAZONE [Concomitant]
  27. METRONIDAZOLE [Concomitant]
  28. METOCLOPRAMIDE [Concomitant]
  29. MAGNESIUM HYDROXIDE TAB [Concomitant]
  30. MIDAZOLAM HCL [Concomitant]
  31. MINERAL OIL+PETROLATUM+ [Concomitant]
  32. MORPHINE [Concomitant]
  33. MUPIROCIN [Concomitant]
  34. SODIUM HYALURONATE [Concomitant]
  35. POTASSIUM CHLORIDE [Concomitant]
  36. SODIUM CHLORIDE [Concomitant]
  37. NICOTINE [Concomitant]
     Dosage: 14 MG AND 21 MG
  38. NYSTATIN + TRIAM ACE [Concomitant]
  39. NYSTATIN [Concomitant]
  40. ORPHENADRINE CITRATE [Concomitant]
  41. OXYMETAZOLINE [Concomitant]
  42. PAPAIN [Concomitant]
  43. PETROLATUM, WHITE [Concomitant]
  44. PHENYLEPHRINE [Concomitant]
  45. POVIDONE IODINE [Concomitant]
  46. PYRIDOXINE HCL [Concomitant]
  47. RIFAMPIN [Concomitant]
  48. RINGERS SOLUTION, LACTATED [Concomitant]
  49. SULFAMETHOXAZOLE + TRIMETHOPRIM [Concomitant]
  50. TETRACAINE POLYGYL STERILE OPHTHALMIC SOLUTION [Concomitant]
  51. TROPICAMIDE [Concomitant]
  52. VALSARTAN [Concomitant]
  53. VANCOMYCIN [Concomitant]
  54. VITAMIN A AND D [Concomitant]
  55. PHYTONADIONE [Concomitant]
  56. WARFARIN SODIUM [Concomitant]
  57. NALOXONE [Concomitant]
  58. SODIUM POLYSTYRENE SULFONATE [Concomitant]

REACTIONS (1)
  - CARDIAC ARREST [None]
